FAERS Safety Report 8464805-2 (Version None)
Quarter: 2012Q2

REPORT INFORMATION
  Report Type: 
  Country: None (occurrence: None)
  Receive Date: 20120626
  Receipt Date: 20120614
  Transmission Date: 20120825
  Serious: Yes (Hospitalization)
  Sender: FDA-Public Use
  Company Number: BR-US-EMD SERONO, INC.-7140486

PATIENT
  Sex: Female

DRUGS (4)
  1. FLUOXETINE [Concomitant]
     Indication: PRODUCT USED FOR UNKNOWN INDICATION
  2. REMITEC (RENITEC) [Concomitant]
     Indication: PRODUCT USED FOR UNKNOWN INDICATION
  3. REBIF [Suspect]
     Indication: RELAPSING-REMITTING MULTIPLE SCLEROSIS
     Dates: start: 20030714, end: 20120601
  4. REBIF [Suspect]
     Dates: start: 20120601

REACTIONS (3)
  - FACE OEDEMA [None]
  - CENTRAL NERVOUS SYSTEM LESION [None]
  - PARAESTHESIA [None]
